FAERS Safety Report 21355149 (Version 1)
Quarter: 2022Q3

REPORT INFORMATION
  Report Type: Spontaneous
  Country: US (occurrence: None)
  Receive Date: 20220920
  Receipt Date: 20220920
  Transmission Date: 20221027
  Serious: Yes (Life-Threatening, Hospitalization, Disabling, Other)
  Sender: FDA-Public Use
  Company Number: None

PATIENT
  Age: 62 Year
  Sex: Female
  Weight: 61.65 kg

DRUGS (2)
  1. LORAZEPAM [Suspect]
     Active Substance: LORAZEPAM
     Indication: Seizure
     Dates: start: 20220129
  2. ATIVAN [Concomitant]
     Active Substance: LORAZEPAM

REACTIONS (7)
  - Paradoxical drug reaction [None]
  - Dyskinesia [None]
  - Seizure [None]
  - Depression [None]
  - Anxiety [None]
  - Myocardial infarction [None]
  - Withdrawal syndrome [None]

NARRATIVE: CASE EVENT DATE: 20220129
